FAERS Safety Report 7468192-8 (Version None)
Quarter: 2011Q2

REPORT INFORMATION
  Report Type: 
  Country: None (occurrence: None)
  Receive Date: 20110509
  Receipt Date: 20110504
  Transmission Date: 20111010
  Serious: Yes (Other)
  Sender: FDA-Public Use
  Company Number: US-PFIZER INC-2007036850

PATIENT
  Sex: Female

DRUGS (1)
  1. NEURONTIN [Suspect]
     Indication: DIABETIC NEUROPATHY
     Dates: start: 20050101

REACTIONS (6)
  - DEPRESSION [None]
  - DRUG INEFFECTIVE FOR UNAPPROVED INDICATION [None]
  - CARDIAC DISORDER [None]
  - THINKING ABNORMAL [None]
  - RENAL DISORDER [None]
  - SUICIDAL IDEATION [None]
